FAERS Safety Report 16811261 (Version 1)
Quarter: 2019Q3

REPORT INFORMATION
  Report Type: Report from Study
  Country: US (occurrence: US)
  Receive Date: 20190916
  Receipt Date: 20190916
  Transmission Date: 20191005
  Serious: Yes (Other)
  Sender: FDA-Public Use
  Company Number: US-JNJFOC-20190905995

PATIENT
  Sex: Female

DRUGS (1)
  1. DOXORUBICIN HYDROCHLORIDE. [Suspect]
     Active Substance: DOXORUBICIN HYDROCHLORIDE
     Indication: NEOPLASM MALIGNANT
     Dosage: 10 OR MORE CYCLES OF PLD WITH MEDIAN CUMULATIVE DOSE OF 865 MG, RANGING FROM 660 MG TO 2794 MG
     Route: 065

REACTIONS (9)
  - Neuropathy peripheral [Unknown]
  - Fatigue [Unknown]
  - Dermatitis [Unknown]
  - Off label use [Unknown]
  - Product use in unapproved indication [Unknown]
  - Mucosal inflammation [Unknown]
  - Cough [Unknown]
  - Nausea [Unknown]
  - Oesophagitis [Unknown]
